FAERS Safety Report 22533160 (Version 3)
Quarter: 2023Q4

REPORT INFORMATION
  Report Type: Report from Study
  Country: ZA (occurrence: ZA)
  Receive Date: 20230607
  Receipt Date: 20231206
  Transmission Date: 20240109
  Serious: Yes (Other)
  Sender: FDA-Public Use
  Company Number: ZA-GILEAD-2023-0630814

PATIENT
  Age: 0 Year
  Sex: Male

DRUGS (1)
  1. EMTRICITABINE\TENOFOVIR DISOPROXIL FUMARATE [Suspect]
     Active Substance: EMTRICITABINE\TENOFOVIR DISOPROXIL FUMARATE
     Indication: Prophylaxis against HIV infection
     Dosage: UNK
     Route: 064
     Dates: start: 20191007

REACTIONS (3)
  - Low birth weight baby [Recovered/Resolved]
  - Premature baby [Recovered/Resolved]
  - Foetal exposure during pregnancy [Recovered/Resolved]

NARRATIVE: CASE EVENT DATE: 20200113
